FAERS Safety Report 17585829 (Version 1)
Quarter: 2020Q1

REPORT INFORMATION
  Report Type: Spontaneous
  Country: US (occurrence: US)
  Receive Date: 20200324
  Receipt Date: 20200324
  Transmission Date: 20200409
  Serious: No
  Sender: FDA-Public Use
  Company Number: None

PATIENT
  Age: 22 Year
  Sex: Male

DRUGS (1)
  1. SIROLIMUS TAB 2MG [Suspect]
     Active Substance: SIROLIMUS
     Route: 048
     Dates: start: 202003

REACTIONS (2)
  - Off label use [None]
  - Thyroid cancer [None]

NARRATIVE: CASE EVENT DATE: 20200324
